FAERS Safety Report 5478762-4 (Version None)
Quarter: 2007Q4

REPORT INFORMATION
  Report Type: 
  Country: None (occurrence: None)
  Receive Date: 20071005
  Receipt Date: 20070927
  Transmission Date: 20080405
  Serious: Yes (Death, Hospitalization)
  Sender: FDA-Public Use
  Company Number: CM-MERCK-0706USA02715

PATIENT
  Age: 15 Year
  Sex: Male

DRUGS (1)
  1. STROMECTOL [Suspect]
     Route: 048
     Dates: start: 20070528, end: 20070528

REACTIONS (8)
  - ACUTE PULMONARY OEDEMA [None]
  - DYSPNOEA [None]
  - HEADACHE [None]
  - OEDEMA [None]
  - PRURITUS [None]
  - PYREXIA [None]
  - RESPIRATORY FAILURE [None]
  - URTICARIA [None]
